FAERS Safety Report 4601358-0 (Version None)
Quarter: 2005Q1

REPORT INFORMATION
  Report Type: 
  Country: None (occurrence: None)
  Receive Date: 20050308
  Receipt Date: 20050217
  Transmission Date: 20050727
  Serious: Yes (Hospitalization)
  Sender: FDA-Public Use
  Company Number: US-AMGEN-US115838

PATIENT
  Age: 45 Year
  Sex: Female
  Weight: 98.5 kg

DRUGS (2)
  1. NEULASTA [Suspect]
     Indication: CHEMOTHERAPY
     Route: 058
     Dates: start: 20041208
  2. TAXOTERE [Concomitant]
     Dates: start: 20041207

REACTIONS (3)
  - BONE PAIN [None]
  - CHEST PAIN [None]
  - DYSPNOEA [None]
